FAERS Safety Report 8597973-2 (Version None)
Quarter: 2012Q3

REPORT INFORMATION
  Report Type: 
  Country: None (occurrence: None)
  Receive Date: 20120802
  Receipt Date: 20120720
  Transmission Date: 20120928
  Serious: No
  Sender: FDA-Public Use
  Company Number: SPI201200168

PATIENT
  Age: 74 Year
  Sex: Female
  Weight: 93.4 kg

DRUGS (4)
  1. AMITIZA [Suspect]
     Indication: CONSTIPATION
     Dosage: 24 MCG, BID (3 CAPSULES 8 MCG), ORAL; 16 MCG, BID (2 CAPSULES 8 MCG), ORAL
     Route: 048
     Dates: start: 20120702, end: 20120701
  2. AMITIZA [Suspect]
     Indication: IRRITABLE BOWEL SYNDROME
     Dosage: 24 MCG, BID (3 CAPSULES 8 MCG), ORAL; 16 MCG, BID (2 CAPSULES 8 MCG), ORAL
     Route: 048
     Dates: start: 20120702, end: 20120701
  3. AMITIZA [Suspect]
     Indication: CONSTIPATION
     Dosage: 24 MCG, BID (3 CAPSULES 8 MCG), ORAL; 16 MCG, BID (2 CAPSULES 8 MCG), ORAL
     Route: 048
     Dates: start: 20120701
  4. AMITIZA [Suspect]
     Indication: IRRITABLE BOWEL SYNDROME
     Dosage: 24 MCG, BID (3 CAPSULES 8 MCG), ORAL; 16 MCG, BID (2 CAPSULES 8 MCG), ORAL
     Route: 048
     Dates: start: 20120701

REACTIONS (4)
  - FAECAL INCONTINENCE [None]
  - CHEST DISCOMFORT [None]
  - DYSPNOEA [None]
  - NAUSEA [None]
